FAERS Safety Report 25864589 (Version 3)
Quarter: 2025Q4

REPORT INFORMATION
  Report Type: Spontaneous
  Country: EU (occurrence: EU)
  Receive Date: 20250930
  Receipt Date: 20251121
  Transmission Date: 20260117
  Serious: Yes (Hospitalization, Other)
  Sender: PFIZER
  Company Number: EU-ABBVIE-6458173

PATIENT
  Age: 52 Year
  Sex: Female

DRUGS (3)
  1. METHOTREXATE SODIUM [Suspect]
     Active Substance: METHOTREXATE SODIUM
     Indication: Crohn^s disease
     Dosage: 10 MG, WEEKLY
     Route: 058
  2. RINVOQ [Suspect]
     Active Substance: UPADACITINIB
     Indication: Crohn^s disease
     Dosage: 45 MG, 1X/DAY
     Route: 048
  3. RINVOQ [Suspect]
     Active Substance: UPADACITINIB
     Dosage: 30 MG
     Route: 048

REACTIONS (18)
  - Respiratory failure [Unknown]
  - Pyrexia [Unknown]
  - Pneumocystis jirovecii infection [Unknown]
  - Immunosuppression [Unknown]
  - Encephalitis viral [Recovering/Resolving]
  - Acute respiratory distress syndrome [Unknown]
  - Terminal state [Recovered/Resolved]
  - Lung infiltration [Not Recovered/Not Resolved]
  - Off label use [Unknown]
  - Anaemia [Unknown]
  - Arthritis enteropathic [Unknown]
  - Epstein-Barr virus infection [Unknown]
  - Cytomegalovirus infection [Unknown]
  - Headache [Unknown]
  - Diplopia [Unknown]
  - Photophobia [Unknown]
  - Muscular weakness [Unknown]
  - Infection [Unknown]
